FAERS Safety Report 8059146-1 (Version None)
Quarter: 2012Q1

REPORT INFORMATION
  Report Type: 
  Country: None (occurrence: None)
  Receive Date: 20120120
  Receipt Date: 20120110
  Transmission Date: 20120608
  Serious: Yes (Disabling)
  Sender: FDA-Public Use
  Company Number: BR-NOVOPROD-337163

PATIENT
  Age: 44 Year
  Sex: Female
  Weight: 78 kg

DRUGS (3)
  1. VICTOZA [Suspect]
     Indication: BLOOD GLUCOSE ABNORMAL
     Dosage: 0.6 MG, QD
     Route: 065
     Dates: start: 20110915
  2. VICTOZA [Suspect]
     Dosage: 0.6 MG (15 MINUTES BEFORE LUNCH), QD
     Route: 058
  3. PREDNISOLONE [Concomitant]
     Dosage: 2 TAB, QD
     Dates: start: 20111005, end: 20111018

REACTIONS (1)
  - HYPOACUSIS [None]
